FAERS Safety Report 24174905 (Version 1)
Quarter: 2024Q3

REPORT INFORMATION
  Report Type: Spontaneous
  Country: US (occurrence: US)
  Receive Date: 20240805
  Receipt Date: 20240805
  Transmission Date: 20241016
  Serious: Yes (Other)
  Sender: BRISTOL MYERS SQUIBB
  Company Number: US-BRISTOL-MYERS SQUIBB COMPANY-2024-123525

PATIENT
  Age: 65 Year
  Sex: Male
  Weight: 150.14 kg

DRUGS (1)
  1. POMALIDOMIDE [Suspect]
     Active Substance: POMALIDOMIDE
     Indication: Plasma cell myeloma
     Dosage: 1-21 DAYS OF 28 DAYS
     Route: 048
     Dates: start: 20180222, end: 20180906

REACTIONS (1)
  - Plasma cell myeloma [Unknown]
